FAERS Safety Report 4284037-1 (Version None)
Quarter: 2004Q1

REPORT INFORMATION
  Report Type: 
  Country: None (occurrence: None)
  Receive Date: 20040202
  Receipt Date: 20040202
  Transmission Date: 20041129
  Serious: Yes (Life-Threatening)
  Sender: FDA-Public Use
  Company Number: None

PATIENT
  Sex: Male
  Weight: 90.7194 kg

DRUGS (1)
  1. AMIFOSTINE [Suspect]
     Dosage: DAILY PICC LINE
     Dates: start: 20030928, end: 20031103

REACTIONS (2)
  - FEELING ABNORMAL [None]
  - STEVENS-JOHNSON SYNDROME [None]
